FAERS Safety Report 12529324 (Version 3)
Quarter: 2016Q3

REPORT INFORMATION
  Report Type: Spontaneous
  Country: JP (occurrence: JP)
  Receive Date: 20160705
  Receipt Date: 20160729
  Transmission Date: 20161109
  Serious: Yes (Other)
  Sender: FDA-Public Use
  Company Number: JP-ASTRAZENECA-2016SE72761

PATIENT
  Age: 55 Year
  Sex: Female

DRUGS (3)
  1. SEROQUEL [Suspect]
     Active Substance: QUETIAPINE FUMARATE
     Indication: BIPOLAR I DISORDER
     Route: 048
  2. SEROQUEL [Suspect]
     Active Substance: QUETIAPINE FUMARATE
     Indication: BIPOLAR I DISORDER
     Route: 048
  3. LIMAS [Concomitant]
     Active Substance: LITHIUM CARBONATE
     Indication: BIPOLAR I DISORDER

REACTIONS (4)
  - Hypoglycaemia [Recovered/Resolved]
  - Glucose tolerance impaired [Unknown]
  - Galactorrhoea [Recovered/Resolved]
  - Off label use [Unknown]

NARRATIVE: CASE EVENT DATE: 20120118
